FAERS Safety Report 7750720-6 (Version None)
Quarter: 2011Q3

REPORT INFORMATION
  Report Type: 
  Country: None (occurrence: None)
  Receive Date: 20110912
  Receipt Date: 20110826
  Transmission Date: 20111222
  Serious: Yes (Hospitalization)
  Sender: FDA-Public Use
  Company Number: 1000022962

PATIENT
  Age: 62 Year
  Sex: Female

DRUGS (6)
  1. CO RENITEC (ENALAPRIL MALEATE, HYDROCHLOROTHIAZIDE) [Suspect]
     Indication: HYPERTENSION
     Dosage: 1 DOSAGE FORM (1 DOSAGE FORMS, 1 IN 1 D), ORAL
     Route: 048
     Dates: end: 20110331
  2. NEBIVOLOL HCL [Suspect]
     Indication: HYPERTENSION
     Dosage: 5 MG (5 MG, 1 IN 1 D), ORAL
     Route: 048
  3. OXAZEPAM [Suspect]
     Dosage: ORAL
     Route: 048
     Dates: end: 20090401
  4. METFORMIN HCL [Suspect]
     Indication: DIABETES MELLITUS
     Dosage: 3 GRAM (3 GRAM, 1 IN 1 D), ORAL
     Route: 048
     Dates: end: 20110331
  5. DIAMICRON (GLICLAZIDE) [Suspect]
     Indication: DIABETES MELLITUS
     Dosage: 30 MG (30 MG, 1 IN 1 D), ORAL
     Route: 048
     Dates: end: 20110331
  6. ACAMPROSATE CALCIUM [Suspect]
     Indication: ALCOHOLISM
     Dosage: 666 MG (666 MG, 1 IN 1 D), ORAL
     Route: 048
     Dates: end: 20090401

REACTIONS (6)
  - DECREASED APPETITE [None]
  - HYPOGLYCAEMIA [None]
  - HYPERKALAEMIA [None]
  - LACTIC ACIDOSIS [None]
  - HAEMODIALYSIS [None]
  - RENAL FAILURE ACUTE [None]
